FAERS Safety Report 9253515 (Version 2)
Quarter: 2013Q2

REPORT INFORMATION
  Report Type: Spontaneous
  Country: US (occurrence: US)
  Receive Date: 20130425
  Receipt Date: 20130502
  Transmission Date: 20140414
  Serious: No
  Sender: FDA-Public Use
  Company Number: US-BIOGENIDEC-2013BI036141

PATIENT
  Age: 42 Year
  Sex: Female

DRUGS (1)
  1. TYSABRI [Suspect]
     Indication: MULTIPLE SCLEROSIS
     Route: 042
     Dates: start: 20130211

REACTIONS (6)
  - Malaise [Not Recovered/Not Resolved]
  - Weight decreased [Unknown]
  - Coeliac disease [Unknown]
  - Aphagia [Unknown]
  - Abdominal pain upper [Unknown]
  - Headache [Unknown]
